FAERS Safety Report 10148720 (Version 1)
Quarter: 2014Q2

REPORT INFORMATION
  Report Type: Spontaneous
  Country: US (occurrence: US)
  Receive Date: 20140501
  Receipt Date: 20140501
  Transmission Date: 20141212
  Serious: Yes (Death)
  Sender: FDA-Public Use
  Company Number: US-ROCHE-1394252

PATIENT
  Age: 72 Year
  Sex: Female

DRUGS (1)
  1. XELODA [Suspect]
     Indication: BREAST CANCER
     Dosage: 500 MG, TAKE 3 TABLETS TWICE A DAY ONE WEEK ON AND ONE WEEK OFF
     Route: 048
     Dates: start: 20140311, end: 20140423

REACTIONS (1)
  - Death [Fatal]
